FAERS Safety Report 9015027 (Version 1)
Quarter: 2013Q1

REPORT INFORMATION
  Report Type: Spontaneous
  Country: US (occurrence: None)
  Receive Date: 20130109
  Receipt Date: 20130109
  Transmission Date: 20140127
  Serious: No
  Sender: FDA-Public Use
  Company Number: None

PATIENT
  Sex: Female

DRUGS (1)
  1. STELARA [Suspect]
     Dosage: Q12WKS AFTER WEEK 0 + WEEK 4 SUBCUTANEOUS
     Route: 058
     Dates: start: 20121009

REACTIONS (1)
  - No adverse event [None]
